FAERS Safety Report 8966289 (Version 2)
Quarter: 2012Q4

REPORT INFORMATION
  Report Type: 
  Country: US (occurrence: US)
  Receive Date: 20121217
  Receipt Date: 20121226
  Transmission Date: 20130627
  Serious: Yes (Other)
  Sender: FDA-Public Use
  Company Number: US-JNJFOC-20121203632

PATIENT
  Age: 44 None
  Sex: Female
  Weight: 57.15 kg

DRUGS (10)
  1. SIMPONI [Suspect]
     Indication: RHEUMATOID ARTHRITIS
     Route: 058
     Dates: start: 2011
  2. PLAQUENIL [Suspect]
     Indication: PRODUCT USED FOR UNKNOWN INDICATION
     Route: 065
     Dates: end: 2012
  3. TOPAMAX [Concomitant]
     Indication: MIGRAINE
     Route: 048
  4. RESTASIS [Concomitant]
     Indication: DRY EYE
     Route: 031
     Dates: start: 201203
  5. HYDROCODONE [Concomitant]
     Indication: PAIN
     Route: 048
  6. FOLIC ACID [Concomitant]
     Route: 048
  7. NEURONTIN [Concomitant]
     Indication: PAIN
     Route: 048
  8. LORAZEPAM [Concomitant]
     Indication: ANXIETY
     Route: 048
  9. ASPIRIN [Concomitant]
     Route: 048
  10. PROAIR HFA [Concomitant]
     Indication: ASTHMA
     Route: 055

REACTIONS (9)
  - Depression [Unknown]
  - Rheumatoid arthritis [Unknown]
  - Dry eye [Unknown]
  - Accidental exposure to product [Recovered/Resolved]
  - Anxiety [Unknown]
  - Malaise [Recovered/Resolved]
  - Nasopharyngitis [Recovered/Resolved]
  - Device malfunction [Unknown]
  - Drug dose omission [Not Recovered/Not Resolved]
